FAERS Safety Report 13901763 (Version 1)
Quarter: 2017Q3

REPORT INFORMATION
  Report Type: Spontaneous
  Country: US (occurrence: US)
  Receive Date: 20170824
  Receipt Date: 20170824
  Transmission Date: 20171127
  Serious: Yes (Other)
  Sender: FDA-Public Use
  Company Number: US-ROCHE-1057280

PATIENT
  Sex: Female

DRUGS (3)
  1. TAXOTERE [Concomitant]
     Active Substance: DOCETAXEL
     Indication: BREAST CANCER
  2. NEUPOGEN [Concomitant]
     Active Substance: FILGRASTIM
  3. HERCEPTIN [Suspect]
     Active Substance: TRASTUZUMAB
     Indication: PRODUCT USED FOR UNKNOWN INDICATION
     Route: 065

REACTIONS (9)
  - Diarrhoea [Unknown]
  - Blood pressure increased [Unknown]
  - Gastrointestinal bacterial infection [Unknown]
  - Cardiac failure [Unknown]
  - Peripheral swelling [Unknown]
  - Blister [Unknown]
  - Joint swelling [Unknown]
  - Weight increased [Unknown]
  - Skin exfoliation [Unknown]
